FAERS Safety Report 16959037 (Version 2)
Quarter: 2020Q4

REPORT INFORMATION
  Report Type: Spontaneous
  Country: US (occurrence: US)
  Receive Date: 20191024
  Receipt Date: 20201028
  Transmission Date: 20210113
  Serious: No
  Sender: FDA-Public Use
  Company Number: US-ROCHE-2350726

PATIENT
  Age: 75 Year
  Sex: Male
  Weight: 106 kg

DRUGS (1)
  1. COTELLIC [Suspect]
     Active Substance: COBIMETINIB
     Indication: MALIGNANT MELANOMA
     Route: 048
     Dates: start: 2016

REACTIONS (2)
  - Product packaging difficult to open [Unknown]
  - Skin laceration [Recovered/Resolved]
